FAERS Safety Report 24392106 (Version 1)
Quarter: 2024Q4

REPORT INFORMATION
  Report Type: Spontaneous
  Country: US (occurrence: US)
  Receive Date: 20241003
  Receipt Date: 20241003
  Transmission Date: 20250114
  Serious: No
  Sender: ROCHE
  Company Number: US-ROCHE-10000097276

PATIENT
  Sex: Female

DRUGS (6)
  1. RITUXAN [Suspect]
     Active Substance: RITUXIMAB
     Indication: Interstitial lung disease
     Dosage: 500MG/50ML
     Route: 065
     Dates: start: 20240909
  2. OMEPRAZOLE [Concomitant]
     Active Substance: OMEPRAZOLE
  3. PREDNISONE [Concomitant]
     Active Substance: PREDNISONE
  4. TYLENOL [Concomitant]
     Active Substance: ACETAMINOPHEN
  5. LEVOTHYROXIN POW [Concomitant]
  6. LEFLUNOMIDE [Concomitant]
     Active Substance: LEFLUNOMIDE

REACTIONS (2)
  - Off label use [Unknown]
  - Hypersensitivity [Recovered/Resolved]
